FAERS Safety Report 21727490 (Version 1)
Quarter: 2022Q4

REPORT INFORMATION
  Report Type: Spontaneous
  Country: US (occurrence: None)
  Receive Date: 20221213
  Receipt Date: 20221213
  Transmission Date: 20230113
  Serious: Yes (Other)
  Sender: FDA-Public Use
  Company Number: None

PATIENT
  Age: 52 Year
  Sex: Male
  Weight: 85.5 kg

DRUGS (4)
  1. PREDNISOLONE ACETATE [Suspect]
     Active Substance: PREDNISOLONE ACETATE
     Indication: Conjunctivitis
     Dosage: OTHER QUANTITY : 1 DROP(S);?FREQUENCY : 4 TIMES A DAY;?
     Route: 047
     Dates: start: 20221201, end: 20221209
  2. hydralazine 50 mg two times a day [Concomitant]
  3. meta-pro lol 50 mg one time a day at night [Concomitant]
  4. Amalodapine 50 mg 1 time a day in morning [Concomitant]

REACTIONS (2)
  - Ulcerative keratitis [None]
  - Corneal disorder [None]

NARRATIVE: CASE EVENT DATE: 20221209
